FAERS Safety Report 4510749-8 (Version None)
Quarter: 2004Q4

REPORT INFORMATION
  Report Type: 
  Country: None (occurrence: None)
  Receive Date: 20041025
  Receipt Date: 20030926
  Transmission Date: 20050328
  Serious: Yes (Other)
  Sender: FDA-Public Use
  Company Number: NSADSS2002030651

PATIENT
  Age: 53 Year
  Sex: Female
  Weight: 62.5964 kg

DRUGS (7)
  1. REMICADE [Suspect]
     Indication: RHEUMATOID ARTHRITIS
     Dosage: 1 IN 1 AS NECESSARY, INTRAVENOUS DRIP
     Route: 041
     Dates: start: 20020601, end: 20020601
  2. REMICADE [Suspect]
     Indication: RHEUMATOID ARTHRITIS
     Dosage: 1 IN 1 AS NECESSARY, INTRAVENOUS DRIP
     Route: 041
     Dates: start: 20020701, end: 20020701
  3. REMICADE [Suspect]
     Indication: RHEUMATOID ARTHRITIS
     Dosage: 1 IN 1 AS NECESSARY, INTRAVENOUS DRIP
     Route: 041
     Dates: start: 20020813, end: 20020813
  4. ARAVA [Concomitant]
  5. VIOXX [Concomitant]
  6. PREDNISONE [Concomitant]
  7. ANAKINRA (ANAKINRA) [Concomitant]

REACTIONS (5)
  - CHEST PAIN [None]
  - PHARYNGEAL OEDEMA [None]
  - PHARYNGITIS [None]
  - SOMNOLENCE [None]
  - VOMITING [None]
